FAERS Safety Report 17571793 (Version 1)
Quarter: 2020Q1

REPORT INFORMATION
  Report Type: Report from Study
  Country: US (occurrence: US)
  Receive Date: 20200323
  Receipt Date: 20200323
  Transmission Date: 20200409
  Serious: Yes (Hospitalization, Other)
  Sender: FDA-Public Use
  Company Number: US-SA-2020SA069501

PATIENT
  Age: 52 Year
  Sex: Female

DRUGS (3)
  1. ALEMTUZUMAB [Suspect]
     Active Substance: ALEMTUZUMAB
     Indication: MULTIPLE SCLEROSIS
     Dosage: 12 MG, QD
     Route: 041
     Dates: start: 20200219, end: 20200221
  2. ALEMTUZUMAB [Suspect]
     Active Substance: ALEMTUZUMAB
     Dosage: 12 MG, QD
     Route: 041
     Dates: start: 20181023, end: 20181025
  3. ALEMTUZUMAB [Suspect]
     Active Substance: ALEMTUZUMAB
     Dosage: 12 MG, QD
     Route: 041
     Dates: start: 20171009, end: 20171013

REACTIONS (17)
  - Vomiting [Unknown]
  - Asthenia [Not Recovered/Not Resolved]
  - Trigeminal neuralgia [Unknown]
  - Hyperthyroidism [Unknown]
  - Weight decreased [Not Recovered/Not Resolved]
  - Drooling [Unknown]
  - Immune system disorder [Unknown]
  - Dizziness [Unknown]
  - Pain [Unknown]
  - White blood cell count decreased [Unknown]
  - Dehydration [Unknown]
  - Headache [Unknown]
  - Vascular access site bruising [Not Recovered/Not Resolved]
  - Headache [Unknown]
  - Nausea [Unknown]
  - Fall [Unknown]
  - White blood cells stool positive [Unknown]

NARRATIVE: CASE EVENT DATE: 202002
